FAERS Safety Report 4522661-9 (Version None)
Quarter: 2004Q4

REPORT INFORMATION
  Report Type: 
  Country: None (occurrence: None)
  Receive Date: 20041207
  Receipt Date: 20041124
  Transmission Date: 20050328
  Serious: Yes (Life-Threatening)
  Sender: FDA-Public Use
  Company Number: 2004AP05999

PATIENT
  Age: 81 Year
  Sex: Male

DRUGS (9)
  1. CASODEX [Suspect]
     Indication: PROSTATE CANCER
     Dosage: 80 MG DAILY PO
     Route: 048
     Dates: start: 20040605, end: 20041112
  2. ZOLADEX [Suspect]
     Indication: PROSTATE CANCER
     Dosage: 10.8 MG Q3MO SQ
     Route: 058
     Dates: start: 20040605, end: 20041007
  3. ASPIRIN [Concomitant]
  4. NORVASC [Concomitant]
  5. BLOPRESS [Concomitant]
  6. PLETAL [Concomitant]
  7. GASTER D [Concomitant]
  8. HYPEN [Concomitant]
  9. SIGMART [Concomitant]

REACTIONS (2)
  - INTERSTITIAL LUNG DISEASE [None]
  - LYMPHOCYTE STIMULATION TEST POSITIVE [None]
